FAERS Safety Report 13526720 (Version 2)
Quarter: 2017Q2

REPORT INFORMATION
  Report Type: Spontaneous
  Country: DE (occurrence: DE)
  Receive Date: 20170509
  Receipt Date: 20170616
  Transmission Date: 20170830
  Serious: Yes (Hospitalization)
  Sender: FDA-Public Use
  Company Number: PHHY2017DE066626

PATIENT
  Age: 18 Month
  Sex: Female

DRUGS (1)
  1. GILENYA [Suspect]
     Active Substance: FINGOLIMOD HYDROCHLORIDE
     Indication: PRODUCT USED FOR UNKNOWN INDICATION
     Dosage: 0.5 MG, ONCE/SINGLE
     Route: 065

REACTIONS (2)
  - Bradycardia [Recovered/Resolved]
  - Accidental exposure to product by child [Unknown]

NARRATIVE: CASE EVENT DATE: 20170430
